FAERS Safety Report 8854496 (Version 1)
Quarter: 2012Q4

REPORT INFORMATION
  Report Type: 
  Country: US (occurrence: US)
  Receive Date: 20121023
  Receipt Date: 20121023
  Transmission Date: 20130627
  Serious: Yes (Other)
  Sender: FDA-Public Use
  Company Number: US-PFIZER INC-2012259358

PATIENT
  Sex: Female

DRUGS (1)
  1. XALATAN [Suspect]
     Dosage: Unk
     Route: 047

REACTIONS (3)
  - Visual impairment [Unknown]
  - Malaise [Unknown]
  - Unevaluable event [Unknown]
